FAERS Safety Report 10577271 (Version 1)
Quarter: 2014Q4

REPORT INFORMATION
  Report Type: Spontaneous
  Country: FR (occurrence: FR)
  Receive Date: 20141111
  Receipt Date: 20141111
  Transmission Date: 20150529
  Serious: Yes (Other)
  Sender: FDA-Public Use
  Company Number: FR-PFIZER INC-2014304317

PATIENT
  Age: 55 Year
  Sex: Male

DRUGS (3)
  1. TRIFLUCAN [Suspect]
     Active Substance: FLUCONAZOLE
     Route: 048
  2. AUGMENTIN [Suspect]
     Active Substance: AMOXICILLIN\CLAVULANATE POTASSIUM
     Indication: SINUSITIS
     Route: 048
  3. TAVANIC [Suspect]
     Active Substance: LEVOFLOXACIN
     Indication: SINUSITIS
     Route: 048

REACTIONS (1)
  - Hyposmia [Not Recovered/Not Resolved]

NARRATIVE: CASE EVENT DATE: 201406
